FAERS Safety Report 5125831-4 (Version None)
Quarter: 2006Q4

REPORT INFORMATION
  Report Type: 
  Country: None (occurrence: None)
  Receive Date: 20061012
  Receipt Date: 20061009
  Transmission Date: 20070319
  Serious: Yes (Life-Threatening, Hospitalization)
  Sender: FDA-Public Use
  Company Number: 2006GB01807

PATIENT
  Age: 39 Year
  Sex: Female
  Weight: 70 kg

DRUGS (8)
  1. LIGNOCAINE [Suspect]
     Route: 023
  2. PROPOFOL [Suspect]
     Route: 042
  3. CEFUROXIME [Suspect]
     Route: 042
  4. FENTANYL [Suspect]
     Route: 042
  5. ROCURONIUM [Suspect]
     Indication: ANAESTHESIA
     Route: 042
     Dates: start: 20060918, end: 20060918
  6. LEVOTHYROXINE SODIUM [Concomitant]
     Indication: THYROIDECTOMY
     Route: 048
  7. INHALER [Concomitant]
  8. ORAL CONTRACEPTIVE [Concomitant]

REACTIONS (2)
  - BRONCHOSPASM [None]
  - CIRCULATORY COLLAPSE [None]
